FAERS Safety Report 9270643 (Version 3)
Quarter: 2013Q2

REPORT INFORMATION
  Report Type: Report from Study
  Country: US (occurrence: US)
  Receive Date: 20130503
  Receipt Date: 20130607
  Transmission Date: 20140414
  Serious: Yes (Hospitalization)
  Sender: FDA-Public Use
  Company Number: US-US-EMD SERONO, INC.-7208492

PATIENT
  Sex: Male

DRUGS (1)
  1. REBIF [Suspect]
     Indication: PRODUCT USED FOR UNKNOWN INDICATION
     Route: 058
     Dates: start: 20050909

REACTIONS (5)
  - Clostridium difficile colitis [Recovered/Resolved]
  - Injection site ulcer [Unknown]
  - Injection site scar [Not Recovered/Not Resolved]
  - Asthenia [Recovered/Resolved]
  - Injection site cellulitis [Recovered/Resolved]
